FAERS Safety Report 5736814-5 (Version None)
Quarter: 2008Q2

REPORT INFORMATION
  Report Type: 
  Country: None (occurrence: None)
  Receive Date: 20080509
  Receipt Date: 20080430
  Transmission Date: 20081010
  Serious: Yes (Hospitalization)
  Sender: FDA-Public Use
  Company Number: SP01874

PATIENT
  Age: 80 Year
  Sex: Male

DRUGS (3)
  1. COLAZAL [Suspect]
     Indication: COLITIS ULCERATIVE
     Dosage: ORAL
     Route: 048
     Dates: end: 20080212
  2. MAGNESIUM OXIDE [Concomitant]
  3. PREDNISONE TAB [Concomitant]

REACTIONS (18)
  - ASTHENIA [None]
  - ATRIAL FIBRILLATION [None]
  - BLOOD GLUCOSE FLUCTUATION [None]
  - BRONCHOALVEOLAR LAVAGE ABNORMAL [None]
  - CARDIAC FAILURE CONGESTIVE [None]
  - COUGH [None]
  - DIARRHOEA [None]
  - DISEASE PROGRESSION [None]
  - DYSPNOEA EXERTIONAL [None]
  - ELECTROLYTE IMBALANCE [None]
  - IMMOBILE [None]
  - INFLUENZA [None]
  - INTERSTITIAL LUNG DISEASE [None]
  - MYOPATHY [None]
  - PLEURAL EFFUSION [None]
  - POLYNEUROPATHY [None]
  - RENAL FAILURE ACUTE [None]
  - RESPIRATORY DISTRESS [None]
